FAERS Safety Report 7773758-1 (Version None)
Quarter: 2011Q3

REPORT INFORMATION
  Report Type: 
  Country: None (occurrence: None)
  Receive Date: 20110923
  Receipt Date: 20110920
  Transmission Date: 20111222
  Serious: Yes (Hospitalization)
  Sender: FDA-Public Use
  Company Number: DK-BRISTOL-MYERS SQUIBB COMPANY-13509815

PATIENT
  Age: 23 Year
  Sex: Male

DRUGS (4)
  1. QUETIAPINE FUMARATE [Suspect]
     Indication: SCHIZOPHRENIA
     Route: 048
     Dates: start: 20050718, end: 20050101
  2. ABILIFY [Suspect]
     Indication: SCHIZOPHRENIA
     Route: 048
     Dates: start: 20050616, end: 20050101
  3. SEROQUEL [Concomitant]
     Dates: start: 20050718, end: 20050101
  4. TOPIRAMATE [Concomitant]
     Dates: start: 20050120, end: 20050101

REACTIONS (3)
  - NAUSEA [None]
  - MONONEURITIS [None]
  - HEADACHE [None]
